FAERS Safety Report 9725797 (Version 6)
Quarter: 2015Q2

REPORT INFORMATION
  Report Type: Report from Study
  Country: US (occurrence: US)
  Receive Date: 20131203
  Receipt Date: 20150630
  Transmission Date: 20150821
  Serious: Yes (Hospitalization, Other)
  Sender: FDA-Public Use
  Company Number: US-SANOFI-AVENTIS-2013SA067453

PATIENT
  Age: 54 Year
  Sex: Female

DRUGS (2)
  1. CRESTOR [Concomitant]
     Active Substance: ROSUVASTATIN CALCIUM
     Indication: PRODUCT USED FOR UNKNOWN INDICATION
     Route: 065
  2. AUBAGIO [Suspect]
     Active Substance: TERIFLUNOMIDE
     Indication: MULTIPLE SCLEROSIS
     Route: 048
     Dates: start: 20130320

REACTIONS (8)
  - Contusion [Unknown]
  - Hysterectomy [Unknown]
  - Alopecia [Recovered/Resolved]
  - Scratch [Unknown]
  - Menorrhagia [Unknown]
  - Paraesthesia [Unknown]
  - Cyst [Unknown]
  - Fall [Unknown]

NARRATIVE: CASE EVENT DATE: 201303
